FAERS Safety Report 8608923-4 (Version None)
Quarter: 2012Q3

REPORT INFORMATION
  Report Type: 
  Country: None (occurrence: None)
  Receive Date: 20120821
  Receipt Date: 20120806
  Transmission Date: 20120928
  Serious: Yes (Other)
  Sender: FDA-Public Use
  Company Number: JP-ROCHE-1077883

PATIENT
  Sex: Male
  Weight: 57 kg

DRUGS (8)
  1. FLUOROURACIL [Concomitant]
     Indication: COLON CANCER RECURRENT
     Route: 041
     Dates: start: 20120221
  2. LEVOLEUCOVORIN CALCIUM [Concomitant]
     Indication: COLON CANCER RECURRENT
     Route: 041
     Dates: start: 20120221
  3. JANUVIA [Concomitant]
     Indication: DIABETES MELLITUS
     Route: 048
     Dates: start: 20120229
  4. AVASTIN [Suspect]
     Indication: COLON CANCER RECURRENT
     Route: 041
     Dates: start: 20120221, end: 20120515
  5. MICARDIS [Concomitant]
     Indication: HYPERTENSION
     Route: 048
  6. MIGLITOL [Concomitant]
     Indication: DIABETES MELLITUS
     Route: 048
  7. OXALIPLATIN [Suspect]
     Indication: COLON CANCER RECURRENT
     Route: 041
     Dates: start: 20120221
  8. LEVOFLOXACIN [Suspect]
     Indication: PRODUCT USED FOR UNKNOWN INDICATION
     Dosage: DOSAGE IS UNCERTAIN.
     Route: 065

REACTIONS (3)
  - RENAL FAILURE [None]
  - CARDIAC FAILURE [None]
  - ADVERSE DRUG REACTION [None]
